FAERS Safety Report 8171679-6 (Version None)
Quarter: 2012Q1

REPORT INFORMATION
  Report Type: 
  Country: None (occurrence: None)
  Receive Date: 20120228
  Receipt Date: 20120222
  Transmission Date: 20120608
  Serious: Yes (Disabling)
  Sender: FDA-Public Use
  Company Number: GR-AMGEN-GRCSP2012010916

PATIENT
  Age: 48 Year
  Sex: Female

DRUGS (1)
  1. PROLIA [Suspect]
     Indication: OSTEOPOROSIS
     Dosage: 60 MG, Q6MO

REACTIONS (12)
  - SCIATICA [None]
  - GASTROOESOPHAGEAL REFLUX DISEASE [None]
  - DEPRESSION [None]
  - NEUROLOGICAL SYMPTOM [None]
  - BURNING SENSATION [None]
  - OCULAR HYPERAEMIA [None]
  - ERYTHEMA [None]
  - OEDEMA [None]
  - HYPOAESTHESIA [None]
  - PAIN IN EXTREMITY [None]
  - CELLULITIS [None]
  - DRY EYE [None]
